FAERS Safety Report 6877678-6 (Version None)
Quarter: 2010Q3

REPORT INFORMATION
  Report Type: 
  Country: None (occurrence: None)
  Receive Date: 20100727
  Receipt Date: 20100514
  Transmission Date: 20110219
  Serious: No
  Sender: FDA-Public Use
  Company Number: US-ABBOTT-10P-163-0645550-00

PATIENT
  Sex: Female
  Weight: 79.45 kg

DRUGS (1)
  1. SYNTHROID [Suspect]
     Indication: HYPOTHYROIDISM
     Route: 048
     Dates: start: 20090501

REACTIONS (7)
  - BLOOD THYROID STIMULATING HORMONE ABNORMAL [None]
  - DRUG INEFFECTIVE [None]
  - DYSPNOEA [None]
  - EAR CONGESTION [None]
  - HYPERSENSITIVITY [None]
  - UPPER-AIRWAY COUGH SYNDROME [None]
  - WEIGHT INCREASED [None]
